FAERS Safety Report 4824820-4 (Version None)
Quarter: 2005Q4

REPORT INFORMATION
  Report Type: 
  Country: None (occurrence: None)
  Receive Date: 20051110
  Receipt Date: 20051020
  Transmission Date: 20060501
  Serious: Yes (Hospitalization)
  Sender: FDA-Public Use
  Company Number: GB-SANOFI-SYNTHELABO-F01200502195

PATIENT
  Sex: Female

DRUGS (5)
  1. OXALIPLATIN [Suspect]
     Indication: COLON CANCER
     Dosage: 240 MG 1 X Q3W
     Route: 042
     Dates: start: 20050823, end: 20050823
  2. CAPECITABINE [Suspect]
     Indication: COLON CANCER
     Dosage: 1800 MG FOR 2 WEEKS, Q3W
     Route: 048
     Dates: start: 20050823
  3. BEVACIZUMAB [Suspect]
     Indication: COLON CANCER
     Dosage: 587.5 MG 1 X Q3W
     Route: 042
     Dates: start: 20050823, end: 20050823
  4. ZOTON [Concomitant]
  5. THYROXINE [Concomitant]

REACTIONS (2)
  - HYPERSENSITIVITY [None]
  - LARYNGOSPASM [None]
